FAERS Safety Report 8891815 (Version 1)
Quarter: 2012Q4

REPORT INFORMATION
  Report Type: Spontaneous
  Country: US (occurrence: None)
  Receive Date: 20121108
  Receipt Date: 20121108
  Transmission Date: 20130627
  Serious: Yes (Hospitalization)
  Sender: FDA-Public Use
  Company Number: None

PATIENT
  Age: 44 Year
  Sex: Female
  Weight: 56.7 kg

DRUGS (2)
  1. KENALOG [Suspect]
     Indication: ADVERSE DRUG REACTION
     Route: 030
     Dates: start: 20120525, end: 20120525
  2. KENALOG [Suspect]
     Indication: RASH
     Route: 030
     Dates: start: 20120619, end: 20120619

REACTIONS (15)
  - Tachycardia [None]
  - Hypertension [None]
  - Flushing [None]
  - Weight decreased [None]
  - Headache [None]
  - Pain [None]
  - Nausea [None]
  - Diarrhoea [None]
  - Hair growth abnormal [None]
  - Alopecia [None]
  - Menstrual disorder [None]
  - Anxiety [None]
  - Choking sensation [None]
  - Tremor [None]
  - Rash [None]
